FAERS Safety Report 10423740 (Version 2)
Quarter: 2014Q4

REPORT INFORMATION
  Report Type: Spontaneous
  Country: US (occurrence: None)
  Receive Date: 20140725
  Receipt Date: 20141022
  Transmission Date: 20150528
  Serious: Yes (Other)
  Sender: FDA-Public Use
  Company Number: AUR-APL-2014-07172

PATIENT
  Age: 59 Year
  Sex: Male

DRUGS (1)
  1. TRAMADOL [Suspect]
     Active Substance: TRAMADOL
     Indication: NECK PAIN

REACTIONS (3)
  - Drug dependence [None]
  - Therapeutic response unexpected [None]
  - Fatigue [None]
